FAERS Safety Report 6189889-6 (Version None)
Quarter: 2009Q2

REPORT INFORMATION
  Report Type: 
  Country: None (occurrence: None)
  Receive Date: 20090512
  Receipt Date: 20090512
  Transmission Date: 20091009
  Serious: Yes (Disabling, Other)
  Sender: FDA-Public Use
  Company Number: None

PATIENT
  Age: 46 Year
  Sex: Female
  Weight: 122.4712 kg

DRUGS (2)
  1. LEVAQUIN [Suspect]
     Indication: BRONCHITIS
     Dosage: 1 -500MG- DAILY PO
     Route: 048
     Dates: start: 20090403, end: 20090502
  2. LEVAQUIN [Suspect]
     Indication: PNEUMONIA
     Dosage: 1 -500MG- DAILY PO
     Route: 048
     Dates: start: 20090403, end: 20090502

REACTIONS (12)
  - ABASIA [None]
  - ANXIETY [None]
  - ARTHRALGIA [None]
  - FEELING ABNORMAL [None]
  - FEELING HOT [None]
  - HALLUCINATION, AUDITORY [None]
  - IMPAIRED WORK ABILITY [None]
  - INSOMNIA [None]
  - JOINT SWELLING [None]
  - MYALGIA [None]
  - NIGHTMARE [None]
  - TENDON PAIN [None]
